FAERS Safety Report 4486827-9 (Version None)
Quarter: 2004Q3

REPORT INFORMATION
  Report Type: 
  Country: None (occurrence: None)
  Receive Date: 20040921
  Receipt Date: 20040224
  Transmission Date: 20050211
  Serious: Yes (Hospitalization)
  Sender: FDA-Public Use
  Company Number: 163-20785-04020699

PATIENT
  Age: 45 Year
  Sex: Male

DRUGS (17)
  1. THALOMID [Suspect]
     Indication: MULTIPLE MYELOMA
     Dosage: 200 MG, DAILY, ORAL
     Route: 048
     Dates: start: 20031229, end: 20040115
  2. DEXAMETHASONE [Suspect]
     Indication: MULTIPLE MYELOMA
     Dosage: 40 MG, ORAL
     Route: 048
     Dates: start: 20040105, end: 20040108
  3. CYTOXAN [Suspect]
     Indication: MULTIPLE MYELOMA
     Dosage: 800 MG, INTRAVENOUS
     Route: 042
     Dates: start: 20040105, end: 20040108
  4. ETOPOSIDE [Suspect]
     Indication: MULTIPLE MYELOMA
     Dosage: 80 MG, INTRAVENOUS
     Route: 042
     Dates: start: 20040105, end: 20040108
  5. CISPLATIN [Suspect]
     Indication: MULTIPLE MYELOMA
     Dosage: 20 MG, INTRAVENOUS
     Route: 042
     Dates: start: 20040105, end: 20040108
  6. ACYCLOVIR [Concomitant]
  7. FOLIC ACID [Concomitant]
  8. MULTIVITAMIN [Concomitant]
  9. HEPARIN FLUSH (HEPARIN) [Concomitant]
  10. PANTOPRAZLE (PANTOPRAZOLE) [Concomitant]
  11. NITROGLYCERIN (SPRAY (NOT INHALATION)) [Concomitant]
  12. CALCIUM CARBONATE (CALCIUM CARBONATE) [Concomitant]
  13. METOPROLOL TARTRATE [Concomitant]
  14. FLUCONAZOLE [Concomitant]
  15. PAROXETINE HCL [Concomitant]
  16. ADRIAMYCIN PFS [Concomitant]
  17. VINCRISTINE [Concomitant]

REACTIONS (13)
  - BRADYCARDIA [None]
  - DEHYDRATION [None]
  - DIARRHOEA [None]
  - DISEASE PROGRESSION [None]
  - DIZZINESS [None]
  - GASTROENTERITIS [None]
  - NAUSEA [None]
  - NEUTROPENIA [None]
  - ORTHOSTATIC HYPOTENSION [None]
  - PYREXIA [None]
  - RENAL FAILURE ACUTE [None]
  - THROMBOCYTOPENIA [None]
  - VOMITING [None]
